FAERS Safety Report 6428392-2 (Version None)
Quarter: 2009Q4

REPORT INFORMATION
  Report Type: 
  Country: None (occurrence: None)
  Receive Date: 20091105
  Receipt Date: 20091102
  Transmission Date: 20100525
  Serious: Yes (Hospitalization, Congenital Anomaly)
  Sender: FDA-Public Use
  Company Number: A0680979A

PATIENT
  Sex: Male
  Weight: 2.6 kg

DRUGS (6)
  1. PAXIL [Suspect]
     Indication: DEPRESSION
     Dates: start: 20030101, end: 20050101
  2. PAROXETINE [Suspect]
     Indication: DEPRESSION
     Dates: start: 20030101, end: 20050101
  3. VITAMIN TAB [Concomitant]
  4. INSULIN [Concomitant]
     Indication: GESTATIONAL DIABETES
     Dates: start: 20040101, end: 20050101
  5. PROCARDIA [Concomitant]
  6. STEROID [Concomitant]

REACTIONS (6)
  - CEREBRAL PALSY [None]
  - CONVULSION [None]
  - DRUG EXPOSURE DURING PREGNANCY [None]
  - PERIVENTRICULAR LEUKOMALACIA [None]
  - PLAGIOCEPHALY [None]
  - TORTICOLLIS [None]
